FAERS Safety Report 8834019 (Version 1)
Quarter: 2012Q4

REPORT INFORMATION
  Report Type: 
  Country: FI (occurrence: FI)
  Receive Date: 20121010
  Receipt Date: 20121010
  Transmission Date: 20130627
  Serious: Yes (Other)
  Sender: FDA-Public Use
  Company Number: PHHY2012FI086833

PATIENT
  Age: 71 Year
  Sex: Male

DRUGS (8)
  1. DONEPEZIL [Suspect]
     Indication: DEMENTIA ALZHEIMER^S TYPE
     Dosage: 10 mg per day
  2. ROCURONIUM BROMIDE [Interacting]
     Dosage: 35 mg, UNK
     Route: 042
  3. ROCURONIUM BROMIDE [Interacting]
     Dosage: 15 mg, UNK
     Route: 042
  4. ROCURONIUM BROMIDE [Interacting]
     Dosage: 10 mg, UNK
     Route: 042
  5. GLYCOPYRROLATE [Concomitant]
  6. FENTANYL [Concomitant]
  7. PROPOFOL [Concomitant]
  8. NEOSTIGMINE [Concomitant]

REACTIONS (2)
  - Drug effect decreased [Unknown]
  - Drug interaction [Unknown]
